FAERS Safety Report 4310767-9 (Version None)
Quarter: 2004Q1

REPORT INFORMATION
  Report Type: 
  Country: None (occurrence: None)
  Receive Date: 20040303
  Receipt Date: 20040223
  Transmission Date: 20041129
  Serious: Yes (Hospitalization)
  Sender: FDA-Public Use
  Company Number: WAES 0402USA01751

PATIENT
  Age: 6 Year
  Sex: Male
  Weight: 16 kg

DRUGS (1)
  1. STROMECTOL [Suspect]
     Route: 048
     Dates: start: 20031207, end: 20031207

REACTIONS (6)
  - ABDOMINAL PAIN [None]
  - DIARRHOEA [None]
  - GASTROENTERITIS [None]
  - HAEMOGLOBIN DECREASED [None]
  - PYREXIA [None]
  - VOMITING [None]
